FAERS Safety Report 5911471-3 (Version None)
Quarter: 2008Q4

REPORT INFORMATION
  Report Type: 
  Country: None (occurrence: None)
  Receive Date: 20081007
  Receipt Date: 20080926
  Transmission Date: 20090506
  Serious: Yes (Death)
  Sender: FDA-Public Use
  Company Number: PH-PFIZER INC-2008082059

PATIENT
  Age: 80 Year

DRUGS (1)
  1. ZITHROMAX [Suspect]
     Route: 042

REACTIONS (2)
  - CARDIAC ARREST [None]
  - MEDICATION ERROR [None]
